FAERS Safety Report 7572718-3 (Version None)
Quarter: 2011Q2

REPORT INFORMATION
  Report Type: 
  Country: None (occurrence: None)
  Receive Date: 20110621
  Receipt Date: 20110603
  Transmission Date: 20111010
  Serious: Yes (Life-Threatening, Hospitalization)
  Sender: FDA-Public Use
  Company Number: 2011MA006761

PATIENT
  Age: 82 Year
  Sex: Female

DRUGS (3)
  1. DICLOFENAC SODIUM [Suspect]
     Indication: BACK PAIN
     Dosage: 50 MG;BID;
  2. METFORMIN HCL [Suspect]
     Indication: DIABETES MELLITUS
     Dosage: 850 MG;TID;
  3. ENALAPRIL MALEATE [Concomitant]

REACTIONS (12)
  - DRUG INTERACTION [None]
  - RENAL FAILURE [None]
  - BLOOD GLUCOSE INCREASED [None]
  - BLOOD SODIUM DECREASED [None]
  - MUSCULAR WEAKNESS [None]
  - HYPERKALAEMIA [None]
  - FALL [None]
  - WHITE BLOOD CELL COUNT INCREASED [None]
  - BLOOD PHOSPHORUS INCREASED [None]
  - METABOLIC ACIDOSIS [None]
  - DYSSTASIA [None]
  - BACK PAIN [None]
